FAERS Safety Report 7033590-3 (Version None)
Quarter: 2010Q4

REPORT INFORMATION
  Report Type: 
  Country: None (occurrence: None)
  Receive Date: 20101007
  Receipt Date: 20100928
  Transmission Date: 20110411
  Serious: Yes (Hospitalization)
  Sender: FDA-Public Use
  Company Number: GB-JNJFOC-20101000841

PATIENT
  Sex: Male
  Weight: 46.9 kg

DRUGS (11)
  1. REMICADE [Suspect]
     Indication: CROHN'S DISEASE
     Route: 042
  2. HUMIRA [Suspect]
     Indication: PRODUCT USED FOR UNKNOWN INDICATION
  3. ANTIBIOTICS UNSPECIFIED [Concomitant]
     Indication: CROHN'S DISEASE
  4. CALCIUM [Concomitant]
  5. TACROLIMUS [Concomitant]
  6. CHLORHEXIDINE GLUCONATE [Concomitant]
  7. PARACETAMOL [Concomitant]
  8. ANUSOL HC [Concomitant]
  9. CODEINE PHOSPHATE [Concomitant]
  10. SODIUM CHLORIDE [Concomitant]
  11. ALL OTHER THERAPEUTIC PRODUCT [Concomitant]

REACTIONS (1)
  - CROHN'S DISEASE [None]
